FAERS Safety Report 19488988 (Version 1)
Quarter: 2021Q3

REPORT INFORMATION
  Report Type: Report from Study
  Country: BR (occurrence: BR)
  Receive Date: 20210702
  Receipt Date: 20210702
  Transmission Date: 20211014
  Serious: Yes (Other)
  Sender: FDA-Public Use
  Company Number: BR-UCBSA-2020033012

PATIENT
  Age: 73 Year
  Sex: Female
  Weight: 39 kg

DRUGS (8)
  1. VITAMIN D [VITAMIN D NOS] [Concomitant]
     Active Substance: VITAMIN D NOS
     Indication: OSTEOPOROSIS
     Dosage: UNK
  2. CALCIUM BICARBONATE [Concomitant]
     Active Substance: CALCIUM BICARBONATE
     Indication: OSTEOPOROSIS
     Dosage: UNK
  3. CERTOLIZUMAB PEGOL RA [Suspect]
     Active Substance: CERTOLIZUMAB PEGOL
     Dosage: 200 MILLIGRAM, EV 2 WEEKS(QOW)
     Route: 058
  4. DIPYRONE [Concomitant]
     Active Substance: DIPYRONE
     Indication: PYREXIA
  5. ALENDRONATE SODIUM. [Concomitant]
     Active Substance: ALENDRONATE SODIUM
     Indication: BONE DISORDER
     Dosage: UNK
     Route: 048
     Dates: start: 20200623
  6. AEROLIN [Concomitant]
     Active Substance: ALBUTEROL
     Indication: MYOCARDIAL INFARCTION
     Dosage: UNK
     Route: 048
     Dates: start: 20210421
  7. LEFLUNOMIDA [Concomitant]
     Active Substance: LEFLUNOMIDE
     Indication: RHEUMATOID ARTHRITIS
     Dosage: 20 MILLIGRAM, ONCE DAILY (QD)
     Route: 048
     Dates: start: 20200430
  8. CERTOLIZUMAB PEGOL RA [Suspect]
     Active Substance: CERTOLIZUMAB PEGOL
     Indication: RHEUMATOID ARTHRITIS
     Dosage: 400 MILLIGRAM, EV 4 WEEKS
     Route: 058
     Dates: start: 20200413

REACTIONS (19)
  - Myalgia [Not Recovered/Not Resolved]
  - Ear discomfort [Recovering/Resolving]
  - Pain in extremity [Not Recovered/Not Resolved]
  - Dysuria [Not Recovered/Not Resolved]
  - Illness [Recovered/Resolved]
  - Rhinorrhoea [Not Recovered/Not Resolved]
  - Feeling cold [Not Recovered/Not Resolved]
  - Myocardial infarction [Not Recovered/Not Resolved]
  - Weight decreased [Not Recovered/Not Resolved]
  - Ear pain [Recovering/Resolving]
  - Headache [Not Recovered/Not Resolved]
  - Peripheral swelling [Not Recovered/Not Resolved]
  - Laboratory test abnormal [Not Recovered/Not Resolved]
  - COVID-19 [Not Recovered/Not Resolved]
  - Cough [Not Recovered/Not Resolved]
  - Arthralgia [Not Recovered/Not Resolved]
  - Insomnia [Not Recovered/Not Resolved]
  - Foot deformity [Not Recovered/Not Resolved]
  - Asthenia [Not Recovered/Not Resolved]

NARRATIVE: CASE EVENT DATE: 20200801
